FAERS Safety Report 17281134 (Version 1)
Quarter: 2020Q1

REPORT INFORMATION
  Report Type: Spontaneous
  Country: PL (occurrence: PL)
  Receive Date: 20200117
  Receipt Date: 20200117
  Transmission Date: 20200409
  Serious: Yes (Other)
  Sender: FDA-Public Use
  Company Number: PL-ROCHE-2515735

PATIENT
  Age: 54 Year
  Sex: Female

DRUGS (2)
  1. TAMOXIFEN [Suspect]
     Active Substance: TAMOXIFEN
     Indication: BREAST CANCER
     Route: 065
  2. HERCEPTIN [Suspect]
     Active Substance: TRASTUZUMAB
     Indication: BREAST CANCER
     Route: 041

REACTIONS (6)
  - Hypoaesthesia [Unknown]
  - Demyelinating polyneuropathy [Unknown]
  - Sensory loss [Unknown]
  - Tenderness [Unknown]
  - Paraesthesia [Recovering/Resolving]
  - Areflexia [Unknown]
